FAERS Safety Report 14882673 (Version 2)
Quarter: 2018Q3

REPORT INFORMATION
  Report Type: Spontaneous
  Country: US (occurrence: US)
  Receive Date: 20180511
  Receipt Date: 20180717
  Transmission Date: 20181010
  Serious: No
  Sender: FDA-Public Use
  Company Number: US-SHIONOGI, INC-2018000191

PATIENT
  Sex: Female
  Weight: 85.26 kg

DRUGS (5)
  1. SYMPROIC [Suspect]
     Active Substance: NALDEMEDINE
     Indication: CONSTIPATION
     Dosage: UNK
     Route: 048
  2. HYSINGLA ER [Concomitant]
     Active Substance: HYDROCODONE BITARTRATE
     Indication: INTERVERTEBRAL DISC DEGENERATION
  3. NORCO [Concomitant]
     Active Substance: ACETAMINOPHEN\HYDROCODONE BITARTRATE
     Indication: ARTHRALGIA
     Dosage: 10 G, 2?3, DAILY
     Route: 065
  4. HYSINGLA ER [Concomitant]
     Active Substance: HYDROCODONE BITARTRATE
     Indication: ARTHRALGIA
     Dosage: 40 MG, BID
     Route: 065
  5. NORCO [Concomitant]
     Active Substance: ACETAMINOPHEN\HYDROCODONE BITARTRATE
     Indication: INTERVERTEBRAL DISC DEGENERATION

REACTIONS (12)
  - Nausea [Unknown]
  - Drug withdrawal syndrome [Unknown]
  - Fear of death [Unknown]
  - Vomiting [Unknown]
  - Abdominal pain [Unknown]
  - Hypertension [Unknown]
  - Sphenopalatine neuralgia [Recovered/Resolved]
  - Anxiety [Unknown]
  - Blood pressure decreased [Unknown]
  - Hyperhidrosis [Unknown]
  - Diarrhoea [Unknown]
  - Tachycardia [Unknown]
